FAERS Safety Report 8389746-0 (Version None)
Quarter: 2012Q2

REPORT INFORMATION
  Report Type: 
  Country: None (occurrence: None)
  Receive Date: 20120524
  Receipt Date: 20120524
  Transmission Date: 20120825
  Serious: Yes (Hospitalization)
  Sender: FDA-Public Use
  Company Number: None

PATIENT
  Age: 57 Year
  Sex: Male
  Weight: 95.4 kg

DRUGS (1)
  1. PIPERACILLIN AND TAZOBACTAM [Suspect]
     Indication: POSTOPERATIVE WOUND INFECTION
     Dosage: 3.375 GM QID IV
     Route: 042
     Dates: start: 20120102, end: 20120105

REACTIONS (2)
  - TUBULOINTERSTITIAL NEPHRITIS [None]
  - NEPHRITIS ALLERGIC [None]
